FAERS Safety Report 4452001-5 (Version None)
Quarter: 2004Q3

REPORT INFORMATION
  Report Type: 
  Country: None (occurrence: None)
  Receive Date: 20040915
  Receipt Date: 20040915
  Transmission Date: 20050211
  Serious: Yes (Hospitalization)
  Sender: FDA-Public Use
  Company Number: None

PATIENT
  Sex: Female
  Weight: 86.637 kg

DRUGS (13)
  1. DILANTIN [Suspect]
     Indication: CONVULSION
     Dosage: PO , [PRIOR TO ADMISSION]
     Route: 048
  2. CALCIUM [Concomitant]
  3. FESO4 [Concomitant]
  4. CALCITRIOL [Concomitant]
  5. TRILEPTAL [Concomitant]
  6. ATROVENT [Concomitant]
  7. HUMULIN N [Concomitant]
  8. TOPROL-XL [Concomitant]
  9. DIGOXIN [Concomitant]
  10. ASPIRIN [Concomitant]
  11. COLACE [Concomitant]
  12. NORVASC [Concomitant]
  13. SYNTHROID [Concomitant]

REACTIONS (2)
  - RASH [None]
  - URTICARIA [None]
